FAERS Safety Report 4720953-1 (Version None)
Quarter: 2005Q3

REPORT INFORMATION
  Report Type: 
  Country: None (occurrence: None)
  Receive Date: 20050719
  Receipt Date: 20050212
  Transmission Date: 20060218
  Serious: Yes (Other)
  Sender: FDA-Public Use
  Company Number: 2005013319

PATIENT
  Age: 47 Year
  Sex: Female
  Weight: 79.3795 kg

DRUGS (4)
  1. CELEBREX [Suspect]
     Indication: JOINT STIFFNESS
     Dosage: 200 MG (200 MG, 1 IN 1 D), ORAL
     Route: 048
     Dates: start: 20041207, end: 20041207
  2. PREDNISONE [Suspect]
     Indication: RASH
     Dosage: ORAL
     Route: 048
     Dates: start: 20041216
  3. CENTRUM (MINERALS NOS, VITAMINS NOS) [Concomitant]
  4. TOCOPHEROL CONCENTRATE CAP [Concomitant]

REACTIONS (12)
  - DIZZINESS [None]
  - FALL [None]
  - FEELING ABNORMAL [None]
  - FEELING HOT [None]
  - HEART RATE INCREASED [None]
  - HYPERHIDROSIS [None]
  - NAUSEA [None]
  - PALPITATIONS [None]
  - PRURITUS [None]
  - RASH GENERALISED [None]
  - SCRATCH [None]
  - VISION BLURRED [None]
